FAERS Safety Report 25177138 (Version 2)
Quarter: 2025Q2

REPORT INFORMATION
  Report Type: Spontaneous
  Country: CN (occurrence: CN)
  Receive Date: 20250409
  Receipt Date: 20250415
  Transmission Date: 20250717
  Serious: Yes (Hospitalization, Other)
  Sender: SANOFI AVENTIS
  Company Number: CN-MLMSERVICE-20250403-PI458590-00106-2

PATIENT
  Age: 69 Year
  Sex: Female

DRUGS (3)
  1. CLOPIDOGREL BISULFATE [Suspect]
     Active Substance: CLOPIDOGREL BISULFATE
     Indication: Coronary artery disease
     Dosage: 75 MG, QD
     Route: 048
  2. CLOPIDOGREL BISULFATE [Suspect]
     Active Substance: CLOPIDOGREL BISULFATE
     Dosage: 75 MG, QD
  3. HEPARIN [Suspect]
     Active Substance: HEPARIN SODIUM
     Indication: Coronary artery disease
     Dosage: 2500 IU, Q12H

REACTIONS (8)
  - Femoral nerve injury [Recovered/Resolved]
  - Pain in extremity [Recovered/Resolved]
  - Paralysis [Recovered/Resolved]
  - Haematoma muscle [Recovered/Resolved]
  - Abdominal pain [Recovered/Resolved]
  - Back pain [Recovered/Resolved]
  - Nausea [Recovered/Resolved]
  - Muscle swelling [Recovered/Resolved]
